FAERS Safety Report 5978070-9 (Version None)
Quarter: 2008Q4

REPORT INFORMATION
  Report Type: 
  Country: None (occurrence: None)
  Receive Date: 20081126
  Receipt Date: 20081114
  Transmission Date: 20090506
  Serious: Yes (Hospitalization)
  Sender: FDA-Public Use
  Company Number: 2008S1020438

PATIENT
  Age: 70 Year
  Sex: Male

DRUGS (3)
  1. AMIODARONE HCL [Suspect]
     Indication: BUNDLE BRANCH BLOCK LEFT
     Dosage: 50 MG;TWICE A DAY;ORAL
     Route: 048
     Dates: start: 20010101, end: 20081006
  2. BICOR [Concomitant]
  3. ASPIRIN [Concomitant]

REACTIONS (4)
  - DRUG INEFFECTIVE [None]
  - EXTRASYSTOLES [None]
  - MALAISE [None]
  - THERAPEUTIC RESPONSE UNEXPECTED WITH DRUG SUBSTITUTION [None]
